FAERS Safety Report 6819493-5 (Version None)
Quarter: 2010Q3

REPORT INFORMATION
  Report Type: 
  Country: None (occurrence: None)
  Receive Date: 20100707
  Receipt Date: 20100623
  Transmission Date: 20110219
  Serious: Yes (Death, Hospitalization, Other)
  Sender: FDA-Public Use
  Company Number: PHEH2006US03543

PATIENT
  Sex: Female
  Weight: 68.027 kg

DRUGS (48)
  1. AREDIA [Suspect]
     Dosage: 90 MG OVER 4 HOURS
     Route: 042
  2. AREDIA [Suspect]
     Dosage: 60 MG, UNK
     Route: 042
     Dates: start: 20060210
  3. AREDIA [Suspect]
     Dosage: EVERY 2 MONTHS
     Dates: start: 20061215
  4. ZOMETA [Suspect]
  5. PREDNISONE TAB [Concomitant]
     Indication: MULTIPLE MYELOMA
     Dosage: 5 MG, UNK
     Route: 048
  6. ATIVAN [Concomitant]
     Indication: ANXIETY
  7. EFFEXOR [Concomitant]
  8. PREMPHASE 14/14 [Concomitant]
  9. NEURONTIN [Concomitant]
  10. ZOFRAN [Concomitant]
  11. PREMARIN [Concomitant]
  12. ZOLOFT [Concomitant]
  13. ANZEMET [Concomitant]
  14. DURAGESIC-100 [Concomitant]
     Indication: PAIN IN JAW
     Dosage: UNK, Q48H
  15. ARANESP [Concomitant]
  16. VALIUM [Concomitant]
  17. LIMBITROL [Concomitant]
  18. REGLAN [Concomitant]
  19. ZANTAC [Concomitant]
  20. MOBIC [Concomitant]
  21. LASIX [Concomitant]
  22. KLOR-CON [Concomitant]
  23. POLYGAM S/D [Concomitant]
     Route: 042
  24. COZAAR [Concomitant]
  25. ANTIVERT ^PFIZER^ [Concomitant]
  26. LOPRESSOR [Concomitant]
  27. AVANDIA [Concomitant]
  28. LOMOTIL [Concomitant]
  29. LIBRAX [Concomitant]
  30. TYLOX [Concomitant]
  31. PHENERGAN ^AVENTIS PHARMA^ [Concomitant]
  32. ACTOS [Concomitant]
  33. FLEXERIL [Concomitant]
  34. LABETALOL HYDROCHLORIDE [Concomitant]
  35. MAG-OX [Concomitant]
  36. NEXIUM [Concomitant]
  37. OXYCODONE HYDROCHLORIDE [Concomitant]
  38. PAROXETINE HCL [Concomitant]
  39. ZYRTEC [Concomitant]
  40. INFLUENZA VIRUS VACCINE [Concomitant]
     Dosage: UNK
  41. DEPO-MEDROL [Concomitant]
     Dosage: 80 MG, QD
  42. SOLU-MEDROL [Concomitant]
     Dosage: 125 MG, UNK
  43. KYTRIL [Concomitant]
     Dosage: 1 MG, UNK
  44. PEPCID [Concomitant]
     Dosage: 20 MG, UNK
  45. COUMADIN [Concomitant]
  46. INSULIN [Concomitant]
  47. PROTONIX [Concomitant]
     Dosage: UNK
  48. XANAX [Concomitant]
     Dosage: UNK

REACTIONS (100)
  - ABDOMINAL PAIN [None]
  - ANAEMIA OF CHRONIC DISEASE [None]
  - ANAPHYLACTIC REACTION [None]
  - ANGIOEDEMA [None]
  - ANXIETY [None]
  - ATELECTASIS [None]
  - ATRIAL FIBRILLATION [None]
  - BACK PAIN [None]
  - BONE DEBRIDEMENT [None]
  - BONE DISORDER [None]
  - BONE NEOPLASM MALIGNANT [None]
  - BRONCHIECTASIS [None]
  - CARDIAC ARREST [None]
  - CARDIAC FAILURE CHRONIC [None]
  - CARDIAC SEPTAL DEFECT [None]
  - CARDIOMEGALY [None]
  - CHEST PAIN [None]
  - CONTUSION [None]
  - DECREASED APPETITE [None]
  - DEEP VEIN THROMBOSIS [None]
  - DENTAL CARIES [None]
  - DENTAL DISCOMFORT [None]
  - DENTAL OPERATION [None]
  - DENTURE WEARER [None]
  - DIARRHOEA [None]
  - DIVERTICULUM INTESTINAL HAEMORRHAGIC [None]
  - DYSPHAGIA [None]
  - DYSPNOEA EXERTIONAL [None]
  - ENDOTRACHEAL INTUBATION [None]
  - FAECAL INCONTINENCE [None]
  - FAECES DISCOLOURED [None]
  - FALL [None]
  - FATIGUE [None]
  - GASTROOESOPHAGEAL REFLUX DISEASE [None]
  - GINGIVAL INFECTION [None]
  - HAEMORRHOIDS [None]
  - HEAD INJURY [None]
  - HIATUS HERNIA [None]
  - HILAR LYMPHADENOPATHY [None]
  - HISTOPLASMOSIS [None]
  - HYPERBARIC OXYGEN THERAPY [None]
  - HYPERTENSION [None]
  - HYPOCALCAEMIA [None]
  - ILEUS [None]
  - IMPAIRED GASTRIC EMPTYING [None]
  - INFECTION [None]
  - INTERSTITIAL LUNG DISEASE [None]
  - INTERVERTEBRAL DISC DISPLACEMENT [None]
  - INTERVERTEBRAL DISC OPERATION [None]
  - INTERVERTEBRAL DISC PROTRUSION [None]
  - INTRACRANIAL HYPOTENSION [None]
  - JAW DISORDER [None]
  - LOSS OF CONSCIOUSNESS [None]
  - LUNG NEOPLASM [None]
  - MASTICATION DISORDER [None]
  - MECHANICAL VENTILATION [None]
  - MENTAL STATUS CHANGES [None]
  - MITRAL VALVE PROLAPSE [None]
  - MOUTH ULCERATION [None]
  - MULTIPLE MYELOMA [None]
  - MYOCARDIAL INFARCTION [None]
  - NAUSEA [None]
  - OEDEMA PERIPHERAL [None]
  - OESOPHAGEAL DISORDER [None]
  - OESOPHAGITIS [None]
  - OPEN WOUND [None]
  - OSTEOMALACIA [None]
  - OSTEOMYELITIS [None]
  - OSTEONECROSIS OF JAW [None]
  - PAIN IN JAW [None]
  - PERIODONTAL DISEASE [None]
  - PHLEBITIS [None]
  - PLEURAL EFFUSION [None]
  - PLEURAL FIBROSIS [None]
  - PNEUMONIA [None]
  - PNEUMONIA ASPIRATION [None]
  - POLYURIA [None]
  - PRODUCTIVE COUGH [None]
  - PULMONARY HYPERTENSION [None]
  - PYREXIA [None]
  - RALES [None]
  - RENAL FAILURE ACUTE [None]
  - RESPIRATORY FAILURE [None]
  - SPINAL FUSION SURGERY [None]
  - SPINAL OSTEOARTHRITIS [None]
  - SUPRAVENTRICULAR TACHYCARDIA [None]
  - SYNCOPE [None]
  - TACHYCARDIA [None]
  - TACHYPNOEA [None]
  - TOOTH EXTRACTION [None]
  - TOOTH LOSS [None]
  - TYPE 2 DIABETES MELLITUS [None]
  - URINARY INCONTINENCE [None]
  - VERTIGO [None]
  - VIITH NERVE PARALYSIS [None]
  - VOCAL CORD PARALYSIS [None]
  - VOMITING [None]
  - WEIGHT DECREASED [None]
  - WEIGHT INCREASED [None]
  - WITHDRAWAL OF LIFE SUPPORT [None]
